FAERS Safety Report 6737339-0 (Version None)
Quarter: 2010Q2

REPORT INFORMATION
  Report Type: 
  Country: None (occurrence: None)
  Receive Date: 20100524
  Receipt Date: 20100119
  Transmission Date: 20101027
  Serious: Yes (Hospitalization)
  Sender: FDA-Public Use
  Company Number: FR-JNJFOC-20100506898

PATIENT
  Sex: Female

DRUGS (3)
  1. IXPRIM [Suspect]
     Indication: PAIN
     Route: 048
  2. LOVENOX [Interacting]
     Indication: DEEP VEIN THROMBOSIS
     Route: 058
  3. FLUINDIONE [Suspect]
     Indication: PHLEBITIS
     Route: 048

REACTIONS (2)
  - DRUG INTERACTION [None]
  - HAEMATOMA [None]
